FAERS Safety Report 6987364-X (Version None)
Quarter: 2010Q3

REPORT INFORMATION
  Report Type: 
  Country: None (occurrence: None)
  Receive Date: 20100913
  Receipt Date: 20100809
  Transmission Date: 20110219
  Serious: Yes (Hospitalization)
  Sender: FDA-Public Use
  Company Number: 2010-3077

PATIENT
  Sex: Female

DRUGS (1)
  1. APO-GO AMPOULES (APO-GO) (APOMORPHINE HYDROCHLORIDE) (APOMORPHINE HYDR [Suspect]
     Indication: PARKINSON'S DISEASE
     Dosage: 6MG/H (6MG/H),; 4.5MG/H (4.5MG/H),; 5.5MG/H (5.5MG/H),
     Dates: start: 20070101

REACTIONS (5)
  - EUPHORIC MOOD [None]
  - EYE IRRITATION [None]
  - LACRIMATION INCREASED [None]
  - OCULAR HYPERAEMIA [None]
  - PSYCHOTIC DISORDER [None]
